FAERS Safety Report 4357127-2 (Version None)
Quarter: 2004Q2

REPORT INFORMATION
  Report Type: 
  Country: None (occurrence: None)
  Receive Date: 20040512
  Receipt Date: 20040505
  Transmission Date: 20050107
  Serious: Yes (Hospitalization)
  Sender: FDA-Public Use
  Company Number: MA-MERCK-0405USA00381

PATIENT
  Age: 70 Year
  Sex: Female
  Weight: 55 kg

DRUGS (2)
  1. FLUDEX [Concomitant]
     Indication: HYPERTENSION
     Route: 065
  2. VIOXX [Suspect]
     Indication: BACK PAIN
     Route: 048
     Dates: start: 20040110, end: 20040111

REACTIONS (2)
  - DYSPNOEA [None]
  - FLUID RETENTION [None]
